FAERS Safety Report 9894635 (Version 2)
Quarter: 2014Q1

REPORT INFORMATION
  Report Type: Spontaneous
  Country: JP (occurrence: JP)
  Receive Date: 20140213
  Receipt Date: 20140305
  Transmission Date: 20141002
  Serious: Yes (Hospitalization, Other)
  Sender: FDA-Public Use
  Company Number: PHJP2014JP000528

PATIENT
  Age: 55 Year
  Sex: Male

DRUGS (1)
  1. TEGRETOL TAB 200MG [Suspect]
     Indication: TRIGEMINAL NEURALGIA
     Dosage: 150 MG, TID
     Route: 048

REACTIONS (7)
  - Cerebral artery embolism [Unknown]
  - Antiphospholipid syndrome [Unknown]
  - Systemic lupus erythematosus [Unknown]
  - Embolism [Unknown]
  - Platelet count increased [Unknown]
  - C-reactive protein increased [Recovering/Resolving]
  - Pyrexia [Recovered/Resolved]
